FAERS Safety Report 16978798 (Version 1)
Quarter: 2019Q4

REPORT INFORMATION
  Report Type: Spontaneous
  Country: JP (occurrence: JP)
  Receive Date: 20191031
  Receipt Date: 20191031
  Transmission Date: 20200122
  Serious: Yes (Other)
  Sender: FDA-Public Use
  Company Number: JP-PFIZER INC-2019462097

PATIENT

DRUGS (1)
  1. RHEUMATREX [Suspect]
     Active Substance: METHOTREXATE SODIUM
     Dosage: 4 DF, WEEKLY (2 CAPS IN THE FRIDAY MORNING, 1 CAPSULE EACH IN THE FRIDAY NIGHT AND SATURDAY MORNING)
     Route: 048

REACTIONS (1)
  - Gastrointestinal tract adenoma [Unknown]
